FAERS Safety Report 9157166 (Version 1)
Quarter: 2013Q1

REPORT INFORMATION
  Report Type: Spontaneous
  Country: US (occurrence: None)
  Receive Date: 20130308
  Receipt Date: 20130308
  Transmission Date: 20140127
  Serious: Yes (Other)
  Sender: FDA-Public Use
  Company Number: None

PATIENT
  Age: 74 Year
  Sex: 0
  Weight: 83.46 kg

DRUGS (1)
  1. AMLODIPINE BESYLATE [Suspect]
     Indication: BLOOD PRESSURE

REACTIONS (7)
  - Oral pain [None]
  - Toothache [None]
  - Gingival pain [None]
  - Gingival swelling [None]
  - Aphagia [None]
  - Swelling [None]
  - Rash [None]
